FAERS Safety Report 11885297 (Version 1)
Quarter: 2016Q1

REPORT INFORMATION
  Report Type: Spontaneous
  Country: US (occurrence: US)
  Receive Date: 20160104
  Receipt Date: 20160104
  Transmission Date: 20160526
  Serious: No
  Sender: FDA-Public Use
  Company Number: US-DRREDDYS-USA/USA/15/0046475

PATIENT
  Age: 69 Year
  Sex: Female

DRUGS (3)
  1. HABITROL [Suspect]
     Active Substance: NICOTINE
     Route: 061
     Dates: end: 20150303
  2. HABITROL [Suspect]
     Active Substance: NICOTINE
     Route: 061
  3. HABITROL [Suspect]
     Active Substance: NICOTINE
     Indication: SMOKING CESSATION THERAPY
     Route: 061
     Dates: start: 201412

REACTIONS (4)
  - Insomnia [Unknown]
  - Nicotine dependence [Not Recovered/Not Resolved]
  - Product quality issue [Recovering/Resolving]
  - Anxiety [Not Recovered/Not Resolved]

NARRATIVE: CASE EVENT DATE: 201412
